FAERS Safety Report 4424973-6 (Version None)
Quarter: 2004Q3

REPORT INFORMATION
  Report Type: 
  Country: None (occurrence: None)
  Receive Date: 20040809
  Receipt Date: 20040726
  Transmission Date: 20050211
  Serious: Yes (Hospitalization)
  Sender: FDA-Public Use
  Company Number: US-JNJFOC-20040707371

PATIENT
  Age: 61 Year
  Sex: Male
  Weight: 65.318 kg

DRUGS (16)
  1. INFLIXIMAB (INFLIXIMAB, RECOMBINANT) LYOPHILIZED POWDER [Suspect]
     Indication: CROHN'S DISEASE
     Dosage: 5 MG/KG, INTRAVENOUS   SEE IMAGE
     Route: 042
     Dates: start: 20020426
  2. INFLIXIMAB (INFLIXIMAB, RECOMBINANT) LYOPHILIZED POWDER [Suspect]
     Indication: CROHN'S DISEASE
     Dosage: 5 MG/KG, INTRAVENOUS   SEE IMAGE
     Route: 042
     Dates: start: 20020614
  3. INFLIXIMAB (INFLIXIMAB, RECOMBINANT) LYOPHILIZED POWDER [Suspect]
     Indication: CROHN'S DISEASE
     Dosage: 5 MG/KG, INTRAVENOUS   SEE IMAGE
     Route: 042
     Dates: start: 20020830
  4. INFLIXIMAB (INFLIXIMAB, RECOMBINANT) LYOPHILIZED POWDER [Suspect]
     Indication: CROHN'S DISEASE
     Dosage: 5 MG/KG, INTRAVENOUS   SEE IMAGE
     Route: 042
     Dates: start: 20021025
  5. INFLIXIMAB (INFLIXIMAB, RECOMBINANT) LYOPHILIZED POWDER [Suspect]
     Indication: CROHN'S DISEASE
     Dosage: 5 MG/KG, INTRAVENOUS   SEE IMAGE
     Route: 042
     Dates: start: 20030203
  6. INFLIXIMAB (INFLIXIMAB, RECOMBINANT) LYOPHILIZED POWDER [Suspect]
     Indication: CROHN'S DISEASE
     Dosage: 5 MG/KG, INTRAVENOUS   SEE IMAGE
     Route: 042
     Dates: start: 20030321
  7. INFLIXIMAB (INFLIXIMAB, RECOMBINANT) LYOPHILIZED POWDER [Suspect]
     Indication: CROHN'S DISEASE
     Dosage: 5 MG/KG, INTRAVENOUS   SEE IMAGE
     Route: 042
     Dates: start: 20030430
  8. INFLIXIMAB (INFLIXIMAB, RECOMBINANT) LYOPHILIZED POWDER [Suspect]
     Indication: CROHN'S DISEASE
     Dosage: 5 MG/KG, INTRAVENOUS   SEE IMAGE
     Route: 042
     Dates: start: 20030625
  9. INFLIXIMAB (INFLIXIMAB, RECOMBINANT) LYOPHILIZED POWDER [Suspect]
     Indication: CROHN'S DISEASE
     Dosage: 5 MG/KG, INTRAVENOUS   SEE IMAGE
     Route: 042
     Dates: start: 20030811
  10. INFLIXIMAB (INFLIXIMAB, RECOMBINANT) LYOPHILIZED POWDER [Suspect]
     Indication: CROHN'S DISEASE
     Dosage: 5 MG/KG, INTRAVENOUS   SEE IMAGE
     Route: 042
     Dates: start: 20030926
  11. INFLIXIMAB (INFLIXIMAB, RECOMBINANT) LYOPHILIZED POWDER [Suspect]
     Indication: CROHN'S DISEASE
     Dosage: 5 MG/KG, INTRAVENOUS   SEE IMAGE
     Route: 042
     Dates: start: 20031112
  12. INFLIXIMAB (INFLIXIMAB, RECOMBINANT) LYOPHILIZED POWDER [Suspect]
     Indication: CROHN'S DISEASE
     Dosage: 5 MG/KG, INTRAVENOUS   SEE IMAGE
     Route: 042
     Dates: start: 20031223
  13. INFLIXIMAB (INFLIXIMAB, RECOMBINANT) LYOPHILIZED POWDER [Suspect]
     Indication: CROHN'S DISEASE
     Dosage: 5 MG/KG, INTRAVENOUS   SEE IMAGE
     Route: 042
     Dates: start: 20040206
  14. INFLIXIMAB (INFLIXIMAB, RECOMBINANT) LYOPHILIZED POWDER [Suspect]
     Indication: CROHN'S DISEASE
     Dosage: 5 MG/KG, INTRAVENOUS   SEE IMAGE
     Route: 042
     Dates: start: 20040401
  15. INFLIXIMAB (INFLIXIMAB, RECOMBINANT) LYOPHILIZED POWDER [Suspect]
     Indication: CROHN'S DISEASE
     Dosage: 5 MG/KG, INTRAVENOUS   SEE IMAGE
     Route: 042
     Dates: start: 20040625
  16. PREDNISONE TAB [Suspect]
     Indication: CROHN'S DISEASE

REACTIONS (7)
  - CARDIAC TAMPONADE [None]
  - CONDITION AGGRAVATED [None]
  - CROHN'S DISEASE [None]
  - DEHYDRATION [None]
  - PERICARDIAL EFFUSION [None]
  - PLEURAL EFFUSION [None]
  - TUBERCULOSIS [None]
